FAERS Safety Report 22161212 (Version 1)
Quarter: 2023Q1

REPORT INFORMATION
  Report Type: Spontaneous
  Country: US (occurrence: US)
  Receive Date: 20230331
  Receipt Date: 20230331
  Transmission Date: 20230418
  Serious: Yes (Hospitalization)
  Sender: FDA-Public Use
  Company Number: US-EXELA PHARMA SCIENCES, LLC-2023EXL00007

PATIENT
  Age: 54 Year
  Sex: Female

DRUGS (2)
  1. TRANEXAMIC ACID [Suspect]
     Active Substance: TRANEXAMIC ACID
     Indication: Heavy menstrual bleeding
     Dosage: 1300 MG, 3X/DAY; AS NEEDED
     Route: 048
  2. TRANEXAMIC ACID [Suspect]
     Active Substance: TRANEXAMIC ACID
     Dosage: AT LEAST 6 DOSES OVER THE PRIOR 48 HOURS TO PRESENTATION
     Route: 048

REACTIONS (2)
  - Acute myocardial infarction [Unknown]
  - Hypotension [Unknown]
